FAERS Safety Report 4449489-2 (Version None)
Quarter: 2004Q3

REPORT INFORMATION
  Report Type: 
  Country: None (occurrence: None)
  Receive Date: 20040913
  Receipt Date: 20040907
  Transmission Date: 20050211
  Serious: Yes (Other)
  Sender: FDA-Public Use
  Company Number: 863#1#2004-00005

PATIENT
  Age: 97 Year
  Sex: Male

DRUGS (5)
  1. IDROLAX (MACROGOL) [Suspect]
     Indication: CONSTIPATION
     Dosage: (10G 1 IN 1 DAY(S)), ORAL
     Route: 048
  2. SINEMET [Concomitant]
  3. LOSARTAN (LOSARTAN POTASSIUM) [Concomitant]
  4. BICALUTAMIDE (BICALUTAMIDE) [Concomitant]
  5. IRON (IRON) [Concomitant]

REACTIONS (7)
  - ABDOMINAL PAIN [None]
  - CONDITION AGGRAVATED [None]
  - CONSTIPATION [None]
  - FLATULENCE [None]
  - FLUID INTAKE REDUCED [None]
  - HEAT EXPOSURE INJURY [None]
  - SUBILEUS [None]
